FAERS Safety Report 11294524 (Version 1)
Quarter: 2015Q3

REPORT INFORMATION
  Report Type: Spontaneous
  Country: US (occurrence: None)
  Receive Date: 20150722
  Receipt Date: 20150722
  Transmission Date: 20151125
  Serious: Yes (Other)
  Sender: FDA-Public Use
  Company Number: None

PATIENT
  Age: 42 Year
  Sex: Female

DRUGS (1)
  1. HUMIRA [Suspect]
     Active Substance: ADALIMUMAB
     Indication: CROHN^S DISEASE
     Dosage: 160 MG DAY 1, 80 MG DAY 15, Q OTHER
     Dates: start: 20150629

REACTIONS (2)
  - Infection [None]
  - Respiratory tract congestion [None]

NARRATIVE: CASE EVENT DATE: 20150718
